FAERS Safety Report 16044862 (Version 1)
Quarter: 2019Q1

REPORT INFORMATION
  Report Type: Spontaneous
  Country: US (occurrence: US)
  Receive Date: 20190307
  Receipt Date: 20190307
  Transmission Date: 20190418
  Serious: Yes (Other)
  Sender: FDA-Public Use
  Company Number: US-009507513-1902USA010566

PATIENT
  Sex: Male
  Weight: 77.65 kg

DRUGS (3)
  1. PROVENTIL [Suspect]
     Active Substance: ALBUTEROL
     Dosage: UNK
     Dates: start: 201609
  2. THEOPHYLLINE [Concomitant]
     Active Substance: THEOPHYLLINE ANHYDROUS
     Dosage: UNK
     Dates: start: 1984
  3. PERIACTIN [Suspect]
     Active Substance: CYPROHEPTADINE HYDROCHLORIDE
     Dosage: UNK
     Route: 048
     Dates: start: 1984

REACTIONS (17)
  - Cerebrovascular accident [Unknown]
  - Stent placement [Unknown]
  - Gastrooesophageal reflux disease [Unknown]
  - Bronchitis [Unknown]
  - Adverse event [Unknown]
  - Pneumonia [Unknown]
  - Pharyngeal oedema [Recovering/Resolving]
  - Haemoptysis [Unknown]
  - Wheezing [Unknown]
  - Wheezing [Unknown]
  - Hypersensitivity [Unknown]
  - Angioedema [Recovering/Resolving]
  - Angioedema [Unknown]
  - Pharyngeal oedema [Unknown]
  - Adverse event [Unknown]
  - Choking [Unknown]
  - Wheezing [Unknown]

NARRATIVE: CASE EVENT DATE: 1984
